FAERS Safety Report 9959498 (Version 1)
Quarter: 2014Q1

REPORT INFORMATION
  Report Type: Report from Study
  Country: US (occurrence: US)
  Receive Date: 20140305
  Receipt Date: 20140305
  Transmission Date: 20141002
  Serious: Yes (Other)
  Sender: FDA-Public Use
  Company Number: US-ABBVIE-13P-163-1100906-00

PATIENT
  Age: 66 Year
  Sex: Female

DRUGS (27)
  1. HUMIRA [Suspect]
     Indication: CROHN^S DISEASE
     Dates: start: 20130503, end: 20130503
  2. HUMIRA [Suspect]
     Dates: start: 20130517, end: 20130517
  3. HUMIRA [Suspect]
  4. TRAMADOL [Concomitant]
     Indication: PAIN
  5. ZYRTEC [Concomitant]
     Indication: SEASONAL ALLERGY
  6. ZYRTEC [Concomitant]
     Indication: PROPHYLAXIS
  7. THYROXINE [Concomitant]
     Indication: THYROID DISORDER
  8. CELEXA [Concomitant]
     Indication: MIGRAINE
  9. CELEXA [Concomitant]
     Indication: ANTIDEPRESSANT THERAPY
  10. PANTOPRAZOLE [Concomitant]
     Indication: GASTROOESOPHAGEAL REFLUX DISEASE
  11. ROPINIROLE HYDROCHLORIDE [Concomitant]
     Indication: RESTLESS LEGS SYNDROME
     Dosage: AT NIGHT
  12. ASPIRIN [Concomitant]
     Indication: PRODUCT USED FOR UNKNOWN INDICATION
  13. ASPIRIN [Concomitant]
     Indication: CARDIAC DISORDER
  14. ASPIRIN [Concomitant]
     Indication: PROPHYLAXIS
  15. FOLIC ACID [Concomitant]
     Indication: VITAMIN SUPPLEMENTATION
  16. HYDROCHLORIDE [Concomitant]
     Indication: OEDEMA PERIPHERAL
  17. FLEXERIL [Concomitant]
     Indication: PRODUCT USED FOR UNKNOWN INDICATION
  18. TRAZODONE [Concomitant]
     Indication: PRODUCT USED FOR UNKNOWN INDICATION
  19. VITAMIN D [Concomitant]
     Indication: PRODUCT USED FOR UNKNOWN INDICATION
  20. ALLOPURINOL [Concomitant]
     Indication: GOUT
  21. METHOTREXATE [Concomitant]
     Indication: PRODUCT USED FOR UNKNOWN INDICATION
  22. GLUCOPHAGE [Concomitant]
     Indication: PRODUCT USED FOR UNKNOWN INDICATION
  23. GLUCOPHAGE [Concomitant]
     Dates: start: 20130603
  24. BUDESONIDE [Concomitant]
     Indication: CROHN^S DISEASE
  25. BUDESONIDE [Concomitant]
  26. APRISO [Concomitant]
     Indication: CROHN^S DISEASE
  27. APRISO [Concomitant]
     Dosage: 0.75 MG (2 TABLETS DAILY)

REACTIONS (4)
  - Basal cell carcinoma [Not Recovered/Not Resolved]
  - Headache [Not Recovered/Not Resolved]
  - Back pain [Not Recovered/Not Resolved]
  - Melanocytic naevus [Recovered/Resolved]
